FAERS Safety Report 8988699 (Version 2)
Quarter: 2013Q1

REPORT INFORMATION
  Report Type: Spontaneous
  Country: US (occurrence: None)
  Receive Date: 20121218
  Receipt Date: 20121231
  Transmission Date: 20140127
  Serious: Yes (Hospitalization)
  Sender: FDA-Public Use
  Company Number: UTC-026398

PATIENT
  Age: 84 Year
  Sex: Male
  Weight: 95 kg

DRUGS (3)
  1. TYVASO (6 MICROGRAM, AEROSOL FOR INHALATION) (TREPROSTINIL SODIUM) [Suspect]
     Dosage: 18-54 MCGS (4 IN 1 D), INHALATION
     Route: 055
     Dates: start: 20121119
  2. TYVASO (6 MICROGRAM, AEROSOL FOR INHALATION) (TREPROSTINIL SODIUM) [Suspect]
     Dosage: 18-54 MCGS (4 IN 1 D), INHALATION
     Route: 055
     Dates: start: 20121119
  3. LETAIRIS [Concomitant]

REACTIONS (4)
  - Pulmonary oedema [None]
  - Product taste abnormal [None]
  - Device malfunction [None]
  - Asthenia [None]
